FAERS Safety Report 5763482-9 (Version None)
Quarter: 2008Q2

REPORT INFORMATION
  Report Type: 
  Country: None (occurrence: None)
  Receive Date: 20080604
  Receipt Date: 20080604
  Transmission Date: 20081010
  Serious: No
  Sender: FDA-Public Use
  Company Number: None

PATIENT
  Age: 51 Year
  Sex: Male
  Weight: 102.74 kg

DRUGS (3)
  1. BUSPIRONE HCL [Suspect]
     Indication: AGORAPHOBIA
     Dosage: 5 MG BID PO
     Route: 048
     Dates: start: 20080227, end: 20080311
  2. BUSPIRONE HCL [Suspect]
     Indication: DEPRESSION
     Dosage: 5 MG BID PO
     Route: 048
     Dates: start: 20080227, end: 20080311
  3. MIRTAZAPINE [Suspect]
     Dosage: 30 MG HS PO
     Route: 048
     Dates: start: 20080227, end: 20080311

REACTIONS (7)
  - ABNORMAL BEHAVIOUR [None]
  - ANGER [None]
  - DEPRESSION [None]
  - DIARRHOEA [None]
  - HOMICIDAL IDEATION [None]
  - MOOD SWINGS [None]
  - SUICIDAL IDEATION [None]
